FAERS Safety Report 14165838 (Version 1)
Quarter: 2017Q4

REPORT INFORMATION
  Report Type: Spontaneous
  Country: US (occurrence: US)
  Receive Date: 20171107
  Receipt Date: 20171107
  Transmission Date: 20180321
  Serious: No
  Sender: FDA-Public Use
  Company Number: US-009507513-1710USA010477

PATIENT
  Sex: Female

DRUGS (1)
  1. BELSOMRA [Suspect]
     Active Substance: SUVOREXANT
     Indication: INSOMNIA
     Dosage: 10 MG (1 TABLET), ONCE PER NIGHT
     Route: 048
     Dates: start: 20171014, end: 201710

REACTIONS (1)
  - Pruritus generalised [Recovering/Resolving]

NARRATIVE: CASE EVENT DATE: 201710
